FAERS Safety Report 11787900 (Version 5)
Quarter: 2016Q2

REPORT INFORMATION
  Report Type: Report from Study
  Country: BE (occurrence: BE)
  Receive Date: 20151130
  Receipt Date: 20160411
  Transmission Date: 20160815
  Serious: Yes (Hospitalization)
  Sender: FDA-Public Use
  Company Number: BE-ALEXION-A201504397

PATIENT
  Age: 54 Year
  Sex: Female
  Weight: 53.5 kg

DRUGS (13)
  1. ECULIZUMAB [Suspect]
     Active Substance: ECULIZUMAB
     Dosage: 240 MG, Q2W
     Route: 042
     Dates: start: 20150505
  2. MEDROL [Concomitant]
     Active Substance: METHYLPREDNISOLONE
     Indication: TONSILLITIS
     Dosage: 40 UNK, SINGLE
     Route: 048
     Dates: start: 20151103, end: 20151103
  3. MESTINON [Concomitant]
     Active Substance: PYRIDOSTIGMINE BROMIDE
     Indication: MYASTHENIA GRAVIS
     Dosage: 60 MG, 7-10 TIMES A DAY
     Route: 030
     Dates: start: 20050419
  4. STEOVIT D3 [Concomitant]
     Active Substance: CALCIUM CARBONATE\CHOLECALCIFEROL
     Indication: OSTEOPOROSIS
     Dosage: 500/400 MG, QD
     Route: 042
  5. IMURAN [Concomitant]
     Active Substance: AZATHIOPRINE
     Indication: MYASTHENIA GRAVIS
     Dosage: 50 MG, QID
     Route: 048
     Dates: start: 20140203
  6. MEDROL [Concomitant]
     Active Substance: METHYLPREDNISOLONE
     Indication: MYASTHENIA GRAVIS
     Dosage: 32/16 MG, QOD
     Route: 048
     Dates: start: 1995, end: 20151006
  7. MEDROL [Concomitant]
     Active Substance: METHYLPREDNISOLONE
     Dosage: 24 MG, QOD
     Route: 048
     Dates: start: 20151007
  8. NEORAL [Concomitant]
     Active Substance: CYCLOSPORINE
     Indication: MYASTHENIA GRAVIS
     Dosage: 150-200 MG, QD
     Route: 048
     Dates: start: 20090518
  9. FERRICURE                          /01214501/ [Concomitant]
     Indication: IRON DEFICIENCY
     Dosage: 150 MG, QD
     Route: 048
  10. L-THYROXINE                        /00068001/ [Concomitant]
     Active Substance: LEVOTHYROXINE
     Indication: HYPOTHYROIDISM
     Dosage: 75 MG, QD
     Route: 048
  11. ECULIZUMAB [Suspect]
     Active Substance: ECULIZUMAB
     Indication: MYASTHENIA GRAVIS
     Dosage: 1200 MG, UNK
     Route: 042
     Dates: start: 20150408, end: 20150428
  12. OMEPRAZOLE. [Concomitant]
     Active Substance: OMEPRAZOLE
     Indication: PROPHYLAXIS AGAINST GASTROINTESTINAL ULCER
     Dosage: 40 MG, QD
     Route: 048
     Dates: start: 20050131
  13. SIFROL [Concomitant]
     Active Substance: PRAMIPEXOLE
     Indication: RESTLESS LEGS SYNDROME
     Dosage: 0.18 MG, QD
     Route: 048
     Dates: start: 20100315

REACTIONS (1)
  - Tonsillitis [Recovered/Resolved]

NARRATIVE: CASE EVENT DATE: 20151103
